FAERS Safety Report 7979268-0 (Version None)
Quarter: 2011Q4

REPORT INFORMATION
  Report Type: 
  Country: None (occurrence: None)
  Receive Date: 20111214
  Receipt Date: 20111214
  Transmission Date: 20120403
  Serious: Yes (Life-Threatening, Other)
  Sender: FDA-Public Use
  Company Number: None

PATIENT
  Age: 47 Year
  Sex: Male
  Weight: 86.182 kg

DRUGS (1)
  1. HYDRALAZINE HCL [Suspect]
     Indication: HYPERTENSION
     Dosage: 1 TABLET
     Route: 048
     Dates: start: 20110526, end: 20111129

REACTIONS (8)
  - GOUT [None]
  - OEDEMA PERIPHERAL [None]
  - LUPUS-LIKE SYNDROME [None]
  - ACTIVITIES OF DAILY LIVING IMPAIRED [None]
  - ARTHRALGIA [None]
  - JOINT SWELLING [None]
  - QUALITY OF LIFE DECREASED [None]
  - IMPAIRED WORK ABILITY [None]
